FAERS Safety Report 11445737 (Version 1)
Quarter: 2015Q3

REPORT INFORMATION
  Report Type: Spontaneous
  Country: BR (occurrence: BR)
  Receive Date: 20150902
  Receipt Date: 20150902
  Transmission Date: 20151125
  Serious: Yes (Other)
  Sender: FDA-Public Use
  Company Number: BR-PFIZER INC-2015288218

PATIENT
  Age: 68 Year
  Sex: Female
  Weight: 45 kg

DRUGS (3)
  1. FRONTAL [Suspect]
     Active Substance: ALPRAZOLAM
     Indication: INSOMNIA
  2. FRONTAL [Suspect]
     Active Substance: ALPRAZOLAM
     Indication: ANXIETY
     Dosage: 1 MG (HALF TABLET OF 2MG), AS NEEDED (ONLY WHEN SHE IS WITH INSOMNIA CRISIS, NERVOUS OR ANXIOUS)
     Route: 048
     Dates: start: 2012
  3. FRONTAL [Suspect]
     Active Substance: ALPRAZOLAM
     Indication: NERVOUSNESS

REACTIONS (2)
  - Cardiac disorder [Not Recovered/Not Resolved]
  - American trypanosomiasis [Not Recovered/Not Resolved]
